FAERS Safety Report 10223716 (Version 1)
Quarter: 2014Q2

REPORT INFORMATION
  Report Type: Spontaneous
  Country: GB (occurrence: None)
  Receive Date: 20140605
  Receipt Date: 20140605
  Transmission Date: 20141212
  Serious: Yes (Other)
  Sender: FDA-Public Use
  Company Number: 2014GR_BP003938

PATIENT
  Age: 79 Year
  Sex: Male

DRUGS (1)
  1. FINASTERIDE (FINASTERIDE) [Suspect]
     Indication: PRODUCT USED FOR UNKNOWN INDICATION
     Dosage: 5 MG, ONCE DAILY, ORAL
     Route: 048
     Dates: start: 20140401

REACTIONS (2)
  - Visual acuity reduced [None]
  - Visual acuity reduced [None]
